FAERS Safety Report 8749456 (Version 2)
Quarter: 2012Q4

REPORT INFORMATION
  Report Type: Spontaneous
  Country: US (occurrence: None)
  Receive Date: 20120808
  Receipt Date: 20120816
  Transmission Date: 20130627
  Serious: Yes (Hospitalization, Other)
  Sender: FDA-Public Use
  Company Number: JPI-P-023336

PATIENT
  Age: 46 Year
  Sex: Male
  Weight: 149.69 kg

DRUGS (15)
  1. XYREM [Suspect]
     Indication: NARCOLEPSY
     Dosage: 9 GM (4.5 GM, 2 IN 1 D), ORAL; (4 GM 1ST DOSE / 2.5 GM 2ND DOSE, ORAL
     Route: 048
     Dates: start: 20110516, end: 2011
  2. XYREM [Suspect]
     Indication: EXCESSIVE DAYTIME SLEEPINESS
     Dosage: 9 GM (4.5 GM, 2 IN 1 D), ORAL; (4 GM 1ST DOSE / 2.5 GM 2ND DOSE, ORAL
     Route: 048
     Dates: start: 20110516, end: 2011
  3. XYREM [Suspect]
     Indication: NARCOLEPSY
     Dosage: 9 GM (4.5 GM, 2 IN 1 D), ORAL; (4 GM 1ST DOSE / 2.5 GM 2ND DOSE, ORAL
     Route: 048
     Dates: start: 20111024
  4. XYREM [Suspect]
     Indication: EXCESSIVE DAYTIME SLEEPINESS
     Dosage: 9 GM (4.5 GM, 2 IN 1 D), ORAL; (4 GM 1ST DOSE / 2.5 GM 2ND DOSE, ORAL
     Route: 048
     Dates: start: 20111024
  5. MULTIPLE UNSPECIFIED MEDICATIONS [Concomitant]
  6. LISINOPRIL [Concomitant]
  7. DOXEPIN HYDROCHLORIDE [Concomitant]
  8. SIMVASTATIN [Concomitant]
  9. LIRAGLUTIDE RECOMBINANT [Concomitant]
  10. DEXTROAMPHETAMINE [Concomitant]
  11. CARBIDOPA W/LEVODOPA [Concomitant]
  12. HYDROCHLOROTHIAZIDE [Concomitant]
  13. MELATONIN [Concomitant]
  14. XINE HYDROCHLORIDE [Concomitant]
  15. METFORMIN [Concomitant]

REACTIONS (2)
  - Fall [None]
  - Forearm fracture [None]
